FAERS Safety Report 23646032 (Version 2)
Quarter: 2024Q2

REPORT INFORMATION
  Report Type: Spontaneous
  Country: US (occurrence: US)
  Receive Date: 20240319
  Receipt Date: 20240404
  Transmission Date: 20240716
  Serious: Yes (Death, Hospitalization, Other)
  Sender: FDA-Public Use
  Company Number: US-BRISTOL-MYERS SQUIBB COMPANY-2024-043313

PATIENT
  Age: 65 Year
  Sex: Female
  Weight: 81.65 kg

DRUGS (1)
  1. REVLIMID [Suspect]
     Active Substance: LENALIDOMIDE
     Indication: Follicular lymphoma
     Dosage: FREQUENCY: 3 WKS ON,1 WK OFF/1 CAPSULE DAILY FOR 21 DAYS, THEN 7 DAYS OFF
     Route: 048

REACTIONS (2)
  - Hospitalisation [Unknown]
  - Death [Fatal]
